FAERS Safety Report 13407202 (Version 4)
Quarter: 2018Q3

REPORT INFORMATION
  Report Type: Report from Study
  Country: US (occurrence: US)
  Receive Date: 20170405
  Receipt Date: 20180926
  Transmission Date: 20181010
  Serious: Yes (Hospitalization)
  Sender: FDA-Public Use
  Company Number: US-ACTELION-A-NJ2016-130853

PATIENT
  Age: 48 Year
  Sex: Female
  Weight: 119.73 kg

DRUGS (6)
  1. METOLAZONE. [Suspect]
     Active Substance: METOLAZONE
     Indication: PRODUCT USED FOR UNKNOWN INDICATION
     Route: 065
  2. COUMADIN [Concomitant]
     Active Substance: WARFARIN SODIUM
  3. TRACLEER [Suspect]
     Active Substance: BOSENTAN
     Indication: PULMONARY HYPERTENSION
     Dosage: 125 MG, BID
     Route: 048
     Dates: start: 20151228
  4. ORENITRAM [Suspect]
     Active Substance: TREPROSTINIL
     Indication: PRODUCT USED FOR UNKNOWN INDICATION
     Dosage: 7 MG, TID
     Route: 065
     Dates: start: 20151020
  5. TRACLEER [Suspect]
     Active Substance: BOSENTAN
     Dosage: 125 MG, BID
     Route: 048
  6. RIOCIGUAT. [Concomitant]
     Active Substance: RIOCIGUAT

REACTIONS (17)
  - Back pain [Unknown]
  - Fall [Unknown]
  - Dehydration [Recovered/Resolved]
  - Fluid retention [Unknown]
  - Nausea [Unknown]
  - Dyspnoea [Unknown]
  - Contusion [Unknown]
  - Flushing [Unknown]
  - Syncope [Unknown]
  - Drug dose omission [Unknown]
  - Dizziness [Unknown]
  - Sinus disorder [Unknown]
  - Pyrexia [Unknown]
  - Unevaluable event [Unknown]
  - Oedema peripheral [Unknown]
  - Hypovolaemia [Unknown]
  - Condition aggravated [Unknown]

NARRATIVE: CASE EVENT DATE: 20160721
